FAERS Safety Report 5753123-9 (Version None)
Quarter: 2008Q2

REPORT INFORMATION
  Report Type: 
  Country: None (occurrence: None)
  Receive Date: 20080530
  Receipt Date: 20080519
  Transmission Date: 20081010
  Serious: Yes (Other)
  Sender: FDA-Public Use
  Company Number: JP-JNJFOC-20070802134

PATIENT
  Sex: Female
  Weight: 52 kg

DRUGS (12)
  1. REMICADE [Suspect]
     Route: 042
  2. REMICADE [Suspect]
     Route: 042
  3. REMICADE [Suspect]
     Route: 042
  4. REMICADE [Suspect]
     Route: 042
  5. REMICADE [Suspect]
     Indication: RHEUMATOID ARTHRITIS
     Route: 042
  6. METHOTREXATE [Suspect]
     Route: 048
  7. METHOTREXATE [Suspect]
     Route: 048
  8. METHOTREXATE [Suspect]
     Indication: RHEUMATOID ARTHRITIS
     Route: 048
  9. VOLTAREN [Concomitant]
     Indication: RHEUMATOID ARTHRITIS
     Dosage: ROUTE PR
  10. FOLIAMIN [Concomitant]
     Indication: PROPHYLAXIS
     Route: 048
  11. ONEALFA [Concomitant]
     Indication: OSTEOPOROSIS
     Dosage: 1 RG DAILY
     Route: 048
  12. BONALON [Concomitant]
     Indication: OSTEOPOROSIS
     Route: 048

REACTIONS (4)
  - BLOOD PRESSURE DECREASED [None]
  - CHILLS [None]
  - INFUSION RELATED REACTION [None]
  - PALPITATIONS [None]
